FAERS Safety Report 15119774 (Version 7)
Quarter: 2022Q3

REPORT INFORMATION
  Report Type: Spontaneous
  Country: DE (occurrence: DE)
  Receive Date: 20180709
  Receipt Date: 20220914
  Transmission Date: 20221027
  Serious: Yes (Life-Threatening)
  Sender: FDA-Public Use
  Company Number: PHHY1998DE002149

PATIENT
  Age: 83 Year
  Sex: Female
  Weight: 71 kg

DRUGS (34)
  1. METAMIZOLE [Suspect]
     Active Substance: METAMIZOLE
     Indication: Pain
     Dosage: UNK, QD
     Route: 048
     Dates: start: 19950908, end: 19950908
  2. OFLOXACIN [Suspect]
     Active Substance: OFLOXACIN
     Indication: Urinary tract infection
     Dosage: UNK
     Route: 048
     Dates: start: 19950917, end: 19950923
  3. HEPARIN [Suspect]
     Active Substance: HEPARIN SODIUM
     Indication: Thrombosis prophylaxis
     Dosage: UNK
     Route: 058
     Dates: start: 19950913, end: 19950922
  4. OFLOXACIN [Suspect]
     Active Substance: OFLOXACIN
     Indication: Urinary tract infection
     Dosage: UNK
     Route: 048
     Dates: start: 19950917, end: 19950923
  5. METOCLOPRAMIDE HYDROCHLORIDE [Suspect]
     Active Substance: METOCLOPRAMIDE HYDROCHLORIDE
     Indication: Vomiting
     Dosage: UNK
     Route: 048
     Dates: start: 19950909, end: 19950923
  6. ASPIRIN [Suspect]
     Active Substance: ASPIRIN
     Indication: Thrombosis prophylaxis
     Dosage: 100 MG, QD
     Route: 048
  7. PIRITRAMIDE [Suspect]
     Active Substance: PIRITRAMIDE
     Indication: Pain
     Dosage: UNK
     Route: 042
     Dates: start: 19950908, end: 19950909
  8. METHIMAZOLE [Suspect]
     Active Substance: METHIMAZOLE
     Indication: Thyroid disorder
     Dosage: UNK
     Route: 042
     Dates: start: 19950916, end: 19950917
  9. BROMAZEPAM [Suspect]
     Active Substance: BROMAZEPAM
     Indication: Sedation
     Dosage: UNK
     Route: 048
     Dates: start: 19950907, end: 19950912
  10. ASPIRIN [Suspect]
     Active Substance: ASPIRIN
     Indication: Thrombosis prophylaxis
     Dosage: 100 MG, QD
     Route: 048
  11. SODIUM PERCHLORATE [Suspect]
     Active Substance: SODIUM PERCHLORATE
     Indication: Thyroid disorder
     Dosage: UNK
     Route: 048
     Dates: start: 19950907, end: 19950916
  12. NIFEDIPINE [Suspect]
     Active Substance: NIFEDIPINE
     Indication: Cardiac failure
     Dosage: UNK
     Route: 048
     Dates: start: 19950907, end: 19950914
  13. AQUAPHOR [Suspect]
     Active Substance: PETROLATUM
     Indication: Polyuria
     Dosage: UNK, (FOR 6 DAYS)
     Route: 048
     Dates: start: 19950907, end: 19950912
  14. AQUAPHOR HEALING [Suspect]
     Active Substance: PETROLATUM
     Indication: Polyuria
     Dosage: UNK
     Route: 065
     Dates: start: 19950907, end: 19950912
  15. BACTRIM [Suspect]
     Active Substance: SULFAMETHOXAZOLE\TRIMETHOPRIM
     Indication: Urinary tract infection
     Dosage: UNK
     Route: 048
     Dates: start: 19950913, end: 19950915
  16. PETROLATUM [Suspect]
     Active Substance: PETROLATUM
     Indication: Polyuria
     Dosage: UNK
     Route: 048
     Dates: start: 19950907, end: 19950912
  17. AQUAPHOR [Suspect]
     Active Substance: PETROLATUM
     Indication: Product used for unknown indication
     Dosage: UNK (6 DAYS)
     Route: 065
     Dates: start: 19950907, end: 19950912
  18. ISOSORBIDE MONONITRATE [Concomitant]
     Active Substance: ISOSORBIDE MONONITRATE
     Indication: Coronary artery disease
     Dosage: 20 MG, QD
     Route: 048
     Dates: end: 19950923
  19. NISOLDIPINE [Concomitant]
     Active Substance: NISOLDIPINE
     Indication: Cardiac failure
     Dosage: UNK
     Route: 048
  20. FAMOTIDINE [Concomitant]
     Active Substance: FAMOTIDINE
     Indication: Prophylaxis
     Dosage: 1 DF, QD
     Route: 048
  21. NITROGLYCERIN [Concomitant]
     Active Substance: NITROGLYCERIN
     Indication: Angiogram
     Dosage: UNK
     Route: 055
     Dates: start: 19950907, end: 19950907
  22. MOLSIDOMINE [Concomitant]
     Active Substance: MOLSIDOMINE
     Indication: Coronary artery disease
     Dosage: 2 DF, QD
     Route: 048
  23. ISOSORBIDE MONONITRATE [Concomitant]
     Active Substance: ISOSORBIDE MONONITRATE
     Indication: Coronary artery disease
     Dosage: 20 MG, QD
     Route: 048
     Dates: end: 19950923
  24. RADIOPAQUE [Concomitant]
     Indication: Angiogram
     Dosage: UNK
     Route: 042
     Dates: start: 19950907, end: 19950907
  25. AMBROXOL HYDROCHLORIDE [Concomitant]
     Active Substance: AMBROXOL HYDROCHLORIDE
     Indication: Product used for unknown indication
     Dosage: 6 DOSAGE FORM, QD
     Route: 065
  26. PREDNISOLONE [Concomitant]
     Active Substance: PREDNISOLONE
     Indication: Product used for unknown indication
     Dosage: 200 MG, QD
     Route: 065
  27. ASPIRIN DL-LYSINE [Concomitant]
     Active Substance: ASPIRIN DL-LYSINE
     Indication: Product used for unknown indication
     Dosage: 1 DOSAGE FORM, QD
     Route: 065
  28. NITROGLYCERIN [Concomitant]
     Active Substance: NITROGLYCERIN
     Indication: Angiogram
     Dosage: 2 DOSAGE FORM, QD (2 (DAILY DOSE),  RESPIRATORY)
     Dates: start: 19950907, end: 19950907
  29. OMEPRAZOLE SODIUM [Concomitant]
     Active Substance: OMEPRAZOLE SODIUM
     Indication: Product used for unknown indication
     Dosage: 1 DOSAGE FORM, QD
     Route: 065
  30. DIMETHINDENE MALEATE [Concomitant]
     Active Substance: DIMETHINDENE MALEATE
     Indication: Product used for unknown indication
     Dosage: 2 DOSAGE FORM, QD
     Route: 065
  31. CALCIUM CHLORIDE [Concomitant]
     Active Substance: CALCIUM CHLORIDE
     Indication: Product used for unknown indication
     Dosage: 150 ML, QD
     Route: 065
  32. CALCIUM CHLORIDE [Concomitant]
     Active Substance: CALCIUM CHLORIDE
     Dosage: 1500 ML, QD
     Route: 065
  33. ACETYLCYSTEINE [Concomitant]
     Active Substance: ACETYLCYSTEINE
     Indication: Product used for unknown indication
     Dosage: 3 DOSAGE FORM, QD
     Route: 065
  34. CEFUROXIME SODIUM [Concomitant]
     Active Substance: CEFUROXIME SODIUM
     Indication: Product used for unknown indication
     Dosage: 3 G, QD
     Route: 065

REACTIONS (6)
  - Conjunctivitis [Recovering/Resolving]
  - Toxic epidermal necrolysis [Recovering/Resolving]
  - Stevens-Johnson syndrome [Recovering/Resolving]
  - Mucosal erosion [Recovering/Resolving]
  - Rash [Recovering/Resolving]
  - Pain [Unknown]

NARRATIVE: CASE EVENT DATE: 19950922
